FAERS Safety Report 5000701-0 (Version None)
Quarter: 2006Q2

REPORT INFORMATION
  Report Type: 
  Country: None (occurrence: None)
  Receive Date: 20060512
  Receipt Date: 20060404
  Transmission Date: 20061013
  Serious: Yes (Other)
  Sender: FDA-Public Use
  Company Number: US-AVENTIS-200613287US

PATIENT
  Sex: Male

DRUGS (1)
  1. KETEK [Suspect]
     Indication: UPPER RESPIRATORY TRACT INFECTION
     Dosage: DOSE: UNK

REACTIONS (12)
  - BLOOD ALBUMIN INCREASED [None]
  - CONFUSIONAL STATE [None]
  - CSF PROTEIN INCREASED [None]
  - ELECTROENCEPHALOGRAM ABNORMAL [None]
  - EMPTY SELLA SYNDROME [None]
  - ENCEPHALITIS HERPES [None]
  - ENCEPHALOPATHY [None]
  - MENTAL STATUS CHANGES [None]
  - PYREXIA [None]
  - RED BLOOD CELL SEDIMENTATION RATE INCREASED [None]
  - SINUSITIS [None]
  - VASCULITIS [None]
